FAERS Safety Report 6836099-2 (Version None)
Quarter: 2010Q3

REPORT INFORMATION
  Report Type: 
  Country: None (occurrence: None)
  Receive Date: 20100713
  Receipt Date: 20100630
  Transmission Date: 20110219
  Serious: Yes (Hospitalization)
  Sender: FDA-Public Use
  Company Number: CO-ROCHE-702246

PATIENT
  Sex: Female

DRUGS (6)
  1. CELLCEPT [Suspect]
     Indication: LIVER TRANSPLANT
     Dosage: FREQUENCY: DAILY
     Route: 048
     Dates: start: 20100206
  2. LEVOTHYROXINE [Concomitant]
     Indication: HYPOTHYROIDISM
     Route: 048
  3. TACROLIMUS [Concomitant]
     Indication: LIVER TRANSPLANT
     Route: 048
  4. TACROLIMUS [Concomitant]
     Dosage: FREQUENCY: EVERY DAY.
     Route: 048
  5. CALCIUM CARBONATE [Concomitant]
     Indication: LIVER TRANSPLANT
     Dosage: FREQUENCY: EVERY DAY.
     Route: 048
  6. OMEPRAZOLE [Concomitant]
     Dosage: FREQUENCY: EVERY DAY.
     Route: 048

REACTIONS (3)
  - ABDOMINAL PAIN [None]
  - JAUNDICE [None]
  - TRANSPLANT REJECTION [None]
